FAERS Safety Report 5306378-9 (Version None)
Quarter: 2007Q2

REPORT INFORMATION
  Report Type: 
  Country: None (occurrence: None)
  Receive Date: 20070417
  Receipt Date: 20070406
  Transmission Date: 20071010
  Serious: Yes (Death, Other)
  Sender: FDA-Public Use
  Company Number: 2007314442

PATIENT
  Age: 5 Month
  Sex: Female

DRUGS (2)
  1. PSEUDOEPHEDRINE HCL [Suspect]
  2. BROMPHENIRAMINE [Suspect]

REACTIONS (3)
  - CARDIOMEGALY [None]
  - DRUG TOXICITY [None]
  - VOMITING [None]
